FAERS Safety Report 10167661 (Version 1)
Quarter: 2014Q2

REPORT INFORMATION
  Report Type: Spontaneous
  Country: JP (occurrence: JP)
  Receive Date: 20140512
  Receipt Date: 20140512
  Transmission Date: 20141212
  Serious: Yes (Death)
  Sender: FDA-Public Use
  Company Number: JP-MALLINCKRODT-T201402132

PATIENT
  Age: 66 Year
  Sex: Male
  Weight: 58.5 kg

DRUGS (15)
  1. METHADONE [Suspect]
     Indication: CANCER PAIN
     Dosage: 5 MG, (15 MG DAILY DOSE)
     Route: 048
     Dates: start: 20140106, end: 20140207
  2. METHADONE [Suspect]
     Dosage: 10 MG (20 MG DAILY DOSE)
     Route: 048
     Dates: start: 20140207, end: 20140306
  3. METHADONE [Suspect]
     Dosage: 15 MG (30 MG DAILY DOSE)
     Route: 048
     Dates: start: 20140307, end: 20140320
  4. OXINORM [Concomitant]
     Dosage: 10 MG, PRN
     Route: 048
     Dates: start: 20140128
  5. PRIMPERAN [Concomitant]
     Dosage: 15 MG, UNK
     Route: 048
     Dates: end: 20140319
  6. BROTIZOLAM [Concomitant]
     Dosage: 0.25 MG, UNK
     Route: 048
     Dates: end: 20140319
  7. LOXOPROFEN [Concomitant]
     Dosage: 90 MG, UNK
     Route: 048
     Dates: end: 20140319
  8. REBAMIPIDE [Concomitant]
     Dosage: 180 MG, UNK
     Route: 048
     Dates: end: 20140319
  9. NEXIUM [Concomitant]
     Dosage: 20 MG, UNK
     Route: 048
     Dates: end: 20140319
  10. PURSENNID [Concomitant]
     Dosage: 24 MG, UNK
     Route: 048
     Dates: end: 20140319
  11. MAGMITT [Concomitant]
     Dosage: 990 MG, UNK
     Route: 048
     Dates: end: 20140319
  12. LASIX [Concomitant]
     Dosage: 80 MG, UNK
     Route: 048
     Dates: end: 20140113
  13. DIART [Concomitant]
     Dosage: 60 MG, UNK
     Route: 048
     Dates: start: 20140114, end: 20140319
  14. MIDAZOLAM [Concomitant]
     Dosage: 30 MG, UNK
     Route: 058
     Dates: start: 20140318, end: 20140324
  15. OXYCONTIN [Concomitant]
     Dosage: UNK

REACTIONS (5)
  - Gallbladder cancer [Fatal]
  - Oedema peripheral [Not Recovered/Not Resolved]
  - Somnolence [Recovered/Resolved]
  - Oral candidiasis [Not Recovered/Not Resolved]
  - Delirium [Not Recovered/Not Resolved]
